FAERS Safety Report 5276654-7 (Version None)
Quarter: 2007Q1

REPORT INFORMATION
  Report Type: 
  Country: None (occurrence: None)
  Receive Date: 20070321
  Receipt Date: 20061023
  Transmission Date: 20070707
  Serious: Yes (Hospitalization)
  Sender: FDA-Public Use
  Company Number: 236978K06USA

PATIENT
  Age: 40 Year
  Sex: Male

DRUGS (3)
  1. REBIF [Suspect]
     Indication: MULTIPLE SCLEROSIS
     Dosage: 44 MCG, 3IN 1 WEEKS, SUBCUTANEOUS
     Route: 058
     Dates: start: 20060220
  2. TYLENOL (COTYLENOL) [Concomitant]
  3. ADVIL [Concomitant]

REACTIONS (1)
  - MYOCARDIAL INFARCTION [None]
